FAERS Safety Report 10211461 (Version 3)
Quarter: 2014Q3

REPORT INFORMATION
  Report Type: Spontaneous
  Country: CN (occurrence: None)
  Receive Date: 20140528
  Receipt Date: 20140826
  Transmission Date: 20150326
  Serious: Yes (Other)
  Sender: FDA-Public Use
  Company Number: 7293912

PATIENT
  Age: 44 Year
  Sex: Male

DRUGS (2)
  1. EUTHYROX 50 MCG (LEVOTHYROXINE SODIUM) (TABLET) (LEVOTHYROXINE SODIUM) [Suspect]
     Active Substance: LEVOTHYROXINE SODIUM
     Indication: THYROIDECTOMY
     Dosage: (2 DF)
     Route: 048
     Dates: start: 201307, end: 201402
  2. CALCITRIOL. [Concomitant]
     Active Substance: CALCITRIOL

REACTIONS (3)
  - Palpitations [None]
  - Angina pectoris [None]
  - Muscular weakness [None]

NARRATIVE: CASE EVENT DATE: 201405
